FAERS Safety Report 6371159-4 (Version None)
Quarter: 2009Q3

REPORT INFORMATION
  Report Type: 
  Country: None (occurrence: None)
  Receive Date: 20090923
  Receipt Date: 20090916
  Transmission Date: 20100115
  Serious: Yes (Hospitalization, Disabling)
  Sender: FDA-Public Use
  Company Number: US-MERCK-0909USA02196

PATIENT
  Age: 34 Year
  Sex: Male

DRUGS (1)
  1. PROPECIA [Suspect]
     Indication: ALOPECIA
     Route: 048
     Dates: start: 20081101, end: 20090124

REACTIONS (14)
  - ADVERSE EVENT [None]
  - ALOPECIA [None]
  - ANXIETY [None]
  - COGNITIVE DISORDER [None]
  - DEPRESSION [None]
  - ERECTILE DYSFUNCTION [None]
  - HAIR TEXTURE ABNORMAL [None]
  - HEADACHE [None]
  - HORMONE LEVEL ABNORMAL [None]
  - MENTAL DISORDER [None]
  - MIGRAINE [None]
  - PALPITATIONS [None]
  - PANIC ATTACK [None]
  - TRICHORRHEXIS [None]
